FAERS Safety Report 14472150 (Version 1)
Quarter: 2018Q1

REPORT INFORMATION
  Report Type: Spontaneous
  Country: US (occurrence: US)
  Receive Date: 20180131
  Receipt Date: 20180131
  Transmission Date: 20180509
  Serious: Yes (Other)
  Sender: FDA-Public Use
  Company Number: US-MYLANLABS-2018M1006315

PATIENT
  Age: 12 Month

DRUGS (1)
  1. ESMOLOL [Suspect]
     Active Substance: ESMOLOL HYDROCHLORIDE
     Indication: HYPERTROPHIC CARDIOMYOPATHY
     Dosage: INFUSION; INITIAL DOSAGE NOT STATED BUT AT THE DOSE OF 75MCG/KG/MIN FALSE POSITIVE INCREASE IN PL...
     Route: 050

REACTIONS (2)
  - False positive investigation result [Unknown]
  - Laboratory test interference [Unknown]
